FAERS Safety Report 17405310 (Version 1)
Quarter: 2020Q1

REPORT INFORMATION
  Report Type: Spontaneous
  Country: NL (occurrence: NL)
  Receive Date: 20200212
  Receipt Date: 20200212
  Transmission Date: 20200409
  Serious: Yes (Hospitalization)
  Sender: FDA-Public Use
  Company Number: NL-TEVA-2020-NL-1184407

PATIENT
  Sex: Male
  Weight: 67 kg

DRUGS (1)
  1. AMOXICILLIE (AMOXICILLIN) [Suspect]
     Active Substance: AMOXICILLIN
     Indication: CYSTITIS
     Dosage: ORALLY 500MG, 3, 1
     Dates: start: 20191217

REACTIONS (1)
  - Tubulointerstitial nephritis [Recovering/Resolving]
